FAERS Safety Report 16467479 (Version 6)
Quarter: 2019Q4

REPORT INFORMATION
  Report Type: Spontaneous
  Country: US (occurrence: US)
  Receive Date: 20190624
  Receipt Date: 20191104
  Transmission Date: 20200122
  Serious: No
  Sender: FDA-Public Use
  Company Number: US-BIOGEN-2019BI00717467

PATIENT
  Age: 37 Year
  Sex: Female

DRUGS (2)
  1. TYSABRI [Suspect]
     Active Substance: NATALIZUMAB
     Indication: MULTIPLE SCLEROSIS
     Route: 041
     Dates: start: 20170830, end: 20190213
  2. EPIPEN [Concomitant]
     Active Substance: EPINEPHRINE
     Route: 065

REACTIONS (18)
  - Burning sensation [Unknown]
  - Depression [Not Recovered/Not Resolved]
  - Eating disorder [Unknown]
  - Skin discolouration [Unknown]
  - Fatigue [Not Recovered/Not Resolved]
  - Pain of skin [Not Recovered/Not Resolved]
  - Weight decreased [Unknown]
  - Rash [Unknown]
  - Sweat gland disorder [Not Recovered/Not Resolved]
  - Pruritus [Unknown]
  - Multiple sclerosis [Not Recovered/Not Resolved]
  - Skin bacterial infection [Unknown]
  - Skin irritation [Not Recovered/Not Resolved]
  - Vomiting [Recovered/Resolved]
  - Rash papular [Not Recovered/Not Resolved]
  - Skin tightness [Unknown]
  - Scratch [Unknown]
  - Hypersensitivity [Recovered/Resolved]

NARRATIVE: CASE EVENT DATE: 20170930
